FAERS Safety Report 8286976-3 (Version None)
Quarter: 2012Q2

REPORT INFORMATION
  Report Type: 
  Country: None (occurrence: None)
  Receive Date: 20120416
  Receipt Date: 20120413
  Transmission Date: 20120825
  Serious: No
  Sender: FDA-Public Use
  Company Number: US-PFIZER INC-2012092860

PATIENT
  Sex: Female
  Weight: 87 kg

DRUGS (2)
  1. SOLU-MEDROL [Suspect]
     Indication: ASTHMA
     Dosage: 40 MG, 1X/DAY
     Route: 042
     Dates: start: 20120412, end: 20120412
  2. LEVOFLOXACIN [Concomitant]
     Dosage: 500 MG, UNK
     Route: 042

REACTIONS (5)
  - PRURITUS [None]
  - HYPERSENSITIVITY [None]
  - CHEST DISCOMFORT [None]
  - FLUSHING [None]
  - DYSPNOEA [None]
